FAERS Safety Report 11353081 (Version 1)
Quarter: 2015Q3

REPORT INFORMATION
  Report Type: Spontaneous
  Country: US (occurrence: US)
  Receive Date: 20150807
  Receipt Date: 20150807
  Transmission Date: 20151125
  Serious: No
  Sender: FDA-Public Use
  Company Number: US-JNJFOC-20150513831

PATIENT
  Sex: Male

DRUGS (6)
  1. VITAMIN B [Concomitant]
     Active Substance: VITAMIN B
     Indication: HAIR GROWTH ABNORMAL
     Route: 065
  2. MULTIVITAMINS [Concomitant]
     Active Substance: VITAMINS
     Indication: HAIR GROWTH ABNORMAL
     Route: 065
  3. VIVISCAL HAIR SUPPLEMENT [Concomitant]
     Indication: HAIR GROWTH ABNORMAL
     Route: 065
  4. MENS ROGAINE EXTRA STRENGTH [Suspect]
     Active Substance: MINOXIDIL
     Indication: PROPHYLAXIS
     Route: 061
  5. BIO NUTRO HAIR [Concomitant]
     Indication: HAIR GROWTH ABNORMAL
     Route: 065
  6. MENS ROGAINE EXTRA STRENGTH [Suspect]
     Active Substance: MINOXIDIL
     Route: 061

REACTIONS (2)
  - Hair colour changes [Not Recovered/Not Resolved]
  - Alopecia [Not Recovered/Not Resolved]
